FAERS Safety Report 24141343 (Version 2)
Quarter: 2024Q3

REPORT INFORMATION
  Report Type: Report from Study
  Country: CL (occurrence: CL)
  Receive Date: 20240726
  Receipt Date: 20240813
  Transmission Date: 20241017
  Serious: Yes (Hospitalization, Other)
  Sender: RANBAXY
  Company Number: CL-SUN PHARMACEUTICAL INDUSTRIES LTD-2024RR-458940

PATIENT
  Age: 73 Year
  Sex: Male

DRUGS (8)
  1. OXALIPLATIN [Suspect]
     Active Substance: OXALIPLATIN
     Indication: Adenocarcinoma gastric
     Dosage: 130 MILLIGRAM/SQ. METER, 3/WEEK
     Route: 042
     Dates: start: 20240613, end: 20240704
  2. CAPECITABINE [Suspect]
     Active Substance: CAPECITABINE
     Indication: Adenocarcinoma gastric
     Dosage: 1000 MILLIGRAM/SQ. METER, BID
     Route: 048
     Dates: start: 20240613
  3. LOPERAMIDE [Suspect]
     Active Substance: LOPERAMIDE
     Indication: Adenocarcinoma gastric
     Dosage: 4 MILLIGRAM, BID
     Route: 048
  4. TRASTUZUMAB [Suspect]
     Active Substance: TRASTUZUMAB
     Indication: Adenocarcinoma gastric
     Dosage: 8 MILLIGRAM/KILOGRAM
     Route: 042
  5. TRASTUZUMAB [Suspect]
     Active Substance: TRASTUZUMAB
     Dosage: 6 MILLIGRAM/KILOGRAM
     Route: 042
  6. HYDROCORTISONE [Concomitant]
     Active Substance: HYDROCORTISONE\HYDROCORTISONE ACETATE
     Indication: Respiratory distress
     Dosage: UNK
     Route: 065
     Dates: start: 20240704, end: 20240704
  7. ALBUTEROL [Concomitant]
     Active Substance: ALBUTEROL
     Indication: Respiratory distress
     Dosage: UNK
     Route: 065
  8. IPRATROPIUM [Concomitant]
     Active Substance: IPRATROPIUM
     Indication: Respiratory distress
     Dosage: UNK
     Route: 065
     Dates: start: 20240704, end: 20240704

REACTIONS (1)
  - Acute respiratory distress syndrome [Not Recovered/Not Resolved]

NARRATIVE: CASE EVENT DATE: 20240704
